FAERS Safety Report 6725819 (Version 3)
Quarter: 2013Q4

REPORT INFORMATION
  Report Type: Spontaneous
  Country: GB (occurrence: None)
  Receive Date: 20080731
  Receipt Date: 20131223
  Transmission Date: 20140711
  Serious: Yes (Death)
  Sender: FDA-Public Use
  Company Number: 2008-02160

PATIENT
  Age: 77 Year
  Sex: Female
  Weight: 60 kg

DRUGS (4)
  1. VELCADE [Suspect]
     Indication: PLASMA CELL MYELOMA
     Route: 042
     Dates: start: 20080107, end: 20080321
  2. DEXAMETHASONE [Concomitant]
  3. ZOMETA [Concomitant]
  4. CO-DANTHRAMER (DANTRON, POLOXAMER) [Concomitant]

REACTIONS (1)
  - Drug ineffective [None]
